FAERS Safety Report 5423811-2 (Version None)
Quarter: 2007Q3

REPORT INFORMATION
  Report Type: 
  Country: None (occurrence: None)
  Receive Date: 20070823
  Receipt Date: 20070816
  Transmission Date: 20080115
  Serious: Yes (Hospitalization)
  Sender: FDA-Public Use
  Company Number: US-ELI_LILLY_AND_COMPANY-US200708003679

PATIENT
  Age: 67 Year
  Sex: Female
  Weight: 99.773 kg

DRUGS (4)
  1. BYETTA [Suspect]
     Indication: TYPE 2 DIABETES MELLITUS
     Dosage: 5 UG, 2/D
     Route: 058
     Dates: start: 20060601, end: 20060701
  2. BYETTA [Suspect]
     Dosage: 10 UG, 2/D
     Route: 058
     Dates: start: 20060701, end: 20070102
  3. BYETTA [Suspect]
     Dosage: 10 UG, 2/D
     Route: 058
     Dates: start: 20070101
  4. GLIPIZIDE [Concomitant]
     Indication: TYPE 2 DIABETES MELLITUS
     Dosage: 2 UNK, 2/D
     Route: 048
     Dates: start: 20030101

REACTIONS (5)
  - BLOOD GLUCOSE INCREASED [None]
  - CARDIAC VALVE DISEASE [None]
  - DECREASED APPETITE [None]
  - POSTOPERATIVE WOUND INFECTION [None]
  - WEIGHT DECREASED [None]
